FAERS Safety Report 7551386-0 (Version None)
Quarter: 2011Q2

REPORT INFORMATION
  Report Type: 
  Country: None (occurrence: None)
  Receive Date: 20110616
  Receipt Date: 20110607
  Transmission Date: 20111010
  Serious: Yes (Hospitalization)
  Sender: FDA-Public Use
  Company Number: GB-ASTRAZENECA-2011SE35086

PATIENT
  Age: 77 Year
  Sex: Male

DRUGS (11)
  1. ROSUVASTATIN CALCIUM [Suspect]
     Indication: CORONARY ARTERY DISEASE
     Route: 048
     Dates: start: 20090420
  2. LISINOPRIL [Suspect]
     Indication: HYPERTENSION
     Route: 048
     Dates: start: 20090415
  3. ASPIRIN [Concomitant]
  4. METOPROLOL TARTRATE [Suspect]
     Indication: HYPERTENSION
  5. NITROGLYCERIN [Concomitant]
  6. KETOCONAZOLE [Concomitant]
  7. OMEPRAZOLE [Concomitant]
  8. ISOSORBIDE DINITRATE [Suspect]
     Indication: HYPERTENSION
  9. CLOPIDOGREL [Concomitant]
  10. DESONIDE [Concomitant]
  11. AMLODIPINE [Concomitant]
     Dates: start: 20090320

REACTIONS (1)
  - SYNCOPE [None]
